APPROVED DRUG PRODUCT: CHLOR-TRIMETON
Active Ingredient: CHLORPHENIRAMINE MALEATE; PSEUDOEPHEDRINE SULFATE
Strength: 8MG;120MG
Dosage Form/Route: TABLET, EXTENDED RELEASE;ORAL
Application: N018397 | Product #001
Applicant: BAYER HEALTHCARE LLC
Approved: Approved Prior to Jan 1, 1982 | RLD: Yes | RS: No | Type: DISCN